FAERS Safety Report 7642029-6 (Version None)
Quarter: 2011Q3

REPORT INFORMATION
  Report Type: 
  Country: None (occurrence: None)
  Receive Date: 20110728
  Receipt Date: 20100203
  Transmission Date: 20111222
  Serious: Yes (Other)
  Sender: FDA-Public Use
  Company Number: CA-MERCK-1002CAN00086

PATIENT
  Sex: Female

DRUGS (2)
  1. ETIDRONATE DISODIUM [Suspect]
     Route: 065
  2. FOSAMAX [Suspect]
     Route: 048

REACTIONS (1)
  - FEMUR FRACTURE [None]
